FAERS Safety Report 9929262 (Version 1)
Quarter: 2014Q1

REPORT INFORMATION
  Report Type: Spontaneous
  Country: IN (occurrence: None)
  Receive Date: 20140224
  Receipt Date: 20140224
  Transmission Date: 20141002
  Serious: Yes (Hospitalization)
  Sender: FDA-Public Use
  Company Number: AUR-APL-2014-01927

PATIENT
  Age: 28 Year
  Sex: Female

DRUGS (1)
  1. AMLODIPINE (AMLODIPINE) [Suspect]
     Indication: PRODUCT USED FOR UNKNOWN INDICATION
     Dosage: (50 DOSAGE FORMS, ORAL)
     Route: 048

REACTIONS (14)
  - Hypotension [None]
  - Hypoxia [None]
  - Heart rate increased [None]
  - Respiratory rate increased [None]
  - Central venous pressure increased [None]
  - Blood urea increased [None]
  - Respiratory failure [None]
  - Pleural effusion [None]
  - Vasodilatation [None]
  - Fluid overload [None]
  - Overdose [None]
  - Shock [None]
  - Renal failure [None]
  - Urine output decreased [None]
